FAERS Safety Report 7121706-X (Version None)
Quarter: 2010Q4

REPORT INFORMATION
  Report Type: 
  Country: None (occurrence: None)
  Receive Date: 20101122
  Receipt Date: 20101122
  Transmission Date: 20110411
  Serious: Yes (Other)
  Sender: FDA-Public Use
  Company Number: None

PATIENT
  Age: 74 Year
  Sex: Male
  Weight: 72.5755 kg

DRUGS (1)
  1. TAMSULOSIN HCL [Suspect]
     Indication: URINARY TRACT DISORDER
     Dosage: 1 CAPSULE 2 TIMES A DAY
     Dates: start: 20100915, end: 20101115

REACTIONS (3)
  - DRUG INEFFECTIVE [None]
  - DYSURIA [None]
  - PRODUCT SUBSTITUTION ISSUE [None]
